FAERS Safety Report 11976504 (Version 1)
Quarter: 2016Q1

REPORT INFORMATION
  Report Type: Spontaneous
  Country: US (occurrence: None)
  Receive Date: 20160128
  Receipt Date: 20160128
  Transmission Date: 20160526
  Serious: Yes (Other)
  Sender: FDA-Public Use
  Company Number: None

PATIENT
  Age: 64 Year
  Sex: Female
  Weight: 79.38 kg

DRUGS (4)
  1. CLONIDINE .3MG ACTIVAS [Suspect]
     Active Substance: CLONIDINE
     Indication: HYPERTENSION
     Route: 048
     Dates: start: 20150127, end: 20150127
  2. PREDNESONE [Concomitant]
  3. CORTEF [Concomitant]
     Active Substance: HYDROCORTISONE
  4. T3 [Concomitant]
     Active Substance: LIOTHYRONINE SODIUM

REACTIONS (6)
  - Agitation [None]
  - Headache [None]
  - Burning sensation [None]
  - Insomnia [None]
  - Blood pressure increased [None]
  - Product substitution issue [None]

NARRATIVE: CASE EVENT DATE: 20150127
